FAERS Safety Report 8675676 (Version 3)
Quarter: 2012Q4

REPORT INFORMATION
  Report Type: 
  Country: US (occurrence: US)
  Receive Date: 20120720
  Receipt Date: 20121106
  Transmission Date: 20130627
  Serious: Yes (Hospitalization, Other)
  Sender: FDA-Public Use
  Company Number: US-009507513-2012SP005860

PATIENT

DRUGS (3)
  1. NUVARING [Suspect]
     Indication: CONTRACEPTION
     Dosage: UNK
     Dates: start: 200906, end: 2010
  2. NUVARING [Suspect]
     Dosage: UNK
     Dates: start: 200612, end: 200705
  3. NUVARING [Suspect]
     Dosage: UNK
     Dates: start: 200805, end: 201001

REACTIONS (12)
  - Convulsion [Unknown]
  - Cerebral ischaemia [Recovered/Resolved with Sequelae]
  - Cerebral haemorrhage [Recovered/Resolved with Sequelae]
  - Thrombosis [Recovered/Resolved with Sequelae]
  - Headache [Not Recovered/Not Resolved]
  - Ligament sprain [Unknown]
  - Abdominal pain [Unknown]
  - Road traffic accident [Unknown]
  - Appendix disorder [Unknown]
  - Deformity [Unknown]
  - Gastric disorder [Unknown]
  - Emotional disorder [Not Recovered/Not Resolved]
